FAERS Safety Report 5736098-8 (Version None)
Quarter: 2008Q2

REPORT INFORMATION
  Report Type: 
  Country: None (occurrence: None)
  Receive Date: 20080509
  Receipt Date: 20080424
  Transmission Date: 20081010
  Serious: Yes (Disabling, Other)
  Sender: FDA-Public Use
  Company Number: SPV1-2008-00917

PATIENT
  Age: 7 Year
  Sex: Male
  Weight: 20.9 kg

DRUGS (2)
  1. VYVANSE [Suspect]
     Indication: ATTENTION DEFICIT/HYPERACTIVITY DISORDER
     Dosage: 70, 30 MG, 1/DAY, QD, ORAL
     Route: 048
     Dates: start: 20080405, end: 20080408
  2. VYVANSE [Suspect]
     Indication: ATTENTION DEFICIT/HYPERACTIVITY DISORDER
     Dosage: 70, 30 MG, 1/DAY, QD, ORAL
     Route: 048
     Dates: start: 20080409

REACTIONS (9)
  - DRUG DISPENSING ERROR [None]
  - FALL [None]
  - HALLUCINATION, TACTILE [None]
  - HALLUCINATION, VISUAL [None]
  - INCORRECT DOSE ADMINISTERED [None]
  - INSOMNIA [None]
  - LOGORRHOEA [None]
  - SOCIAL AVOIDANT BEHAVIOUR [None]
  - UPPER LIMB FRACTURE [None]
